FAERS Safety Report 9886309 (Version 1)
Quarter: 2014Q1

REPORT INFORMATION
  Report Type: Spontaneous
  Country: IT (occurrence: IT)
  Receive Date: 20140210
  Receipt Date: 20140210
  Transmission Date: 20141002
  Serious: Yes (Other)
  Sender: FDA-Public Use
  Company Number: IT-WATSON-2014-01663

PATIENT
  Age: 66 Year
  Sex: Male

DRUGS (1)
  1. RISPERIDONE ACTAVIS [Suspect]
     Indication: DEPRESSION
     Dosage: 1.5 MG, DAILY
     Route: 048

REACTIONS (4)
  - Dysphoria [Recovering/Resolving]
  - Sleep disorder [Recovering/Resolving]
  - Suspiciousness [Recovering/Resolving]
  - Product substitution issue [Recovering/Resolving]
